FAERS Safety Report 8848058 (Version 1)
Quarter: 2012Q4

REPORT INFORMATION
  Report Type: 
  Country: US (occurrence: US)
  Receive Date: 20121018
  Receipt Date: 20121018
  Transmission Date: 20130627
  Serious: Yes (Hospitalization)
  Sender: FDA-Public Use
  Company Number: US-SHIRE-ALL1-2012-04909

PATIENT
  Age: 69 None
  Sex: Male
  Weight: 81.63 kg

DRUGS (3)
  1. LIALDA [Suspect]
     Indication: COLITIS ISCHAEMIC
     Dosage: 2.4 g, 1x/day:qd (two 1.2 g tablets)
     Route: 048
     Dates: start: 20120912, end: 20121005
  2. LISINOPRIL HCTZ [Concomitant]
     Indication: HYPERTENSION
     Dosage: UNK mg, 1x/day:qd(10/12.5mg)
     Route: 048
  3. FENOFIBRATE [Concomitant]
     Indication: BLOOD CHOLESTEROL INCREASED
     Dosage: 160 mg, 1x/day:qd
     Route: 048

REACTIONS (3)
  - Pyrexia [Recovered/Resolved]
  - Musculoskeletal stiffness [Recovering/Resolving]
  - Arthritis [Not Recovered/Not Resolved]
